FAERS Safety Report 10700780 (Version 1)
Quarter: 2014Q4

REPORT INFORMATION
  Report Type: Spontaneous
  Country: US (occurrence: None)
  Receive Date: 20141224
  Receipt Date: 20141224
  Transmission Date: 20150529
  Serious: Yes (Other)
  Sender: FDA-Public Use
  Company Number: PHEH2014US006690

PATIENT
  Age: 20 Year
  Sex: Male
  Weight: 99.8 kg

DRUGS (3)
  1. CLOZARIL [Suspect]
     Active Substance: CLOZAPINE
  2. DEPAKOTE [Suspect]
     Active Substance: DIVALPROEX SODIUM
  3. ZITHROMAX [Suspect]
     Active Substance: AZITHROMYCIN DIHYDRATE
     Indication: PNEUMONIA

REACTIONS (3)
  - Neutrophil count decreased [None]
  - Granulocytopenia [None]
  - Agranulocytosis [None]

NARRATIVE: CASE EVENT DATE: 20131211
